FAERS Safety Report 10435631 (Version 2)
Quarter: 2014Q3

REPORT INFORMATION
  Report Type: Spontaneous
  Country: US (occurrence: US)
  Receive Date: 20140908
  Receipt Date: 20140929
  Transmission Date: 20150326
  Serious: Yes (Hospitalization, Other)
  Sender: FDA-Public Use
  Company Number: US-AMGEN-USASP2014067537

PATIENT
  Age: 63 Year
  Sex: Female
  Weight: 56.7 kg

DRUGS (1)
  1. XGEVA [Suspect]
     Active Substance: DENOSUMAB
     Indication: METASTASES TO BONE
     Dosage: 120 MG, QMO
     Route: 058
     Dates: start: 20131205, end: 20140605

REACTIONS (4)
  - Osteonecrosis of jaw [Recovering/Resolving]
  - Oral infection [Unknown]
  - Sepsis [Unknown]
  - Pain [Unknown]

NARRATIVE: CASE EVENT DATE: 20140720
